FAERS Safety Report 23133597 (Version 4)
Quarter: 2023Q4

REPORT INFORMATION
  Report Type: Spontaneous
  Country: PK (occurrence: None)
  Receive Date: 20231101
  Receipt Date: 20231127
  Transmission Date: 20240110
  Serious: Yes (Hospitalization)
  Sender: FDA-Public Use
  Company Number: PK-ROCHE-3443546

PATIENT
  Age: 64 Year
  Sex: Female
  Weight: 108 kg

DRUGS (9)
  1. ACTEMRA [Suspect]
     Active Substance: TOCILIZUMAB
     Indication: Product used for unknown indication
     Route: 065
     Dates: start: 202211
  2. FELDENE [Concomitant]
     Active Substance: PIROXICAM
     Route: 061
  3. PANADOL [Concomitant]
     Active Substance: ACETAMINOPHEN
  4. HYDROXYCHLOROQUINE SULFATE [Concomitant]
     Active Substance: HYDROXYCHLOROQUINE SULFATE
  5. DELTACORTRIL [Concomitant]
     Active Substance: PREDNISOLONE
  6. ACECLOFENAC [Concomitant]
     Active Substance: ACECLOFENAC
  7. FLAGYL [Concomitant]
     Active Substance: METRONIDAZOLE\METRONIDAZOLE HYDROCHLORIDE
  8. ENBREL [Concomitant]
     Active Substance: ETANERCEPT
  9. MOXI [Concomitant]
     Indication: Anal abscess

REACTIONS (7)
  - Arthritis [Unknown]
  - Pain [Unknown]
  - Rheumatoid lung [Unknown]
  - Blood pressure increased [Unknown]
  - Tooth infection [Unknown]
  - Upper respiratory tract infection [Unknown]
  - Arthralgia [Unknown]

NARRATIVE: CASE EVENT DATE: 20230901
